FAERS Safety Report 9702003 (Version 1)
Quarter: 2013Q4

REPORT INFORMATION
  Report Type: Spontaneous
  Country: CN (occurrence: CN)
  Receive Date: 20131121
  Receipt Date: 20131121
  Transmission Date: 20140711
  Serious: Yes (Other)
  Sender: FDA-Public Use
  Company Number: CN-ROCHE-1305641

PATIENT
  Age: 54 Year
  Sex: Male

DRUGS (2)
  1. AVASTIN [Suspect]
     Indication: COLORECTAL CANCER
     Route: 065
  2. AVASTIN [Suspect]
     Indication: METASTASES TO LIVER

REACTIONS (1)
  - Transaminases increased [Unknown]
